FAERS Safety Report 25232540 (Version 1)
Quarter: 2025Q2

REPORT INFORMATION
  Report Type: Report from Study
  Country: US (occurrence: US)
  Receive Date: 20250424
  Receipt Date: 20250424
  Transmission Date: 20250716
  Serious: Yes (Hospitalization, Other)
  Sender: ABBVIE
  Company Number: US-ABBVIE-6207172

PATIENT
  Age: 66 Year
  Sex: Female
  Weight: 74.38 kg

DRUGS (6)
  1. HUMIRA [Suspect]
     Active Substance: ADALIMUMAB
     Indication: Rheumatoid arthritis
     Dosage: CITRATE FREE
     Route: 058
     Dates: start: 202406
  2. HUMIRA [Suspect]
     Active Substance: ADALIMUMAB
     Dosage: CITRATE FREE
     Route: 058
  3. METHOTREXATE [Concomitant]
     Active Substance: METHOTREXATE
     Indication: Rheumatoid arthritis
  4. FOLIC ACID [Concomitant]
     Active Substance: FOLIC ACID
     Indication: Vitamin supplementation
  5. ASPIRIN [Concomitant]
     Active Substance: ASPIRIN
     Indication: Thrombosis
  6. VICODIN [Concomitant]
     Active Substance: ACETAMINOPHEN\HYDROCODONE BITARTRATE
     Indication: Arthralgia

REACTIONS (1)
  - Loose body in joint [Recovering/Resolving]

NARRATIVE: CASE EVENT DATE: 20241101
